FAERS Safety Report 6862360-1 (Version None)
Quarter: 2010Q3

REPORT INFORMATION
  Report Type: 
  Country: None (occurrence: None)
  Receive Date: 20100721
  Receipt Date: 20100706
  Transmission Date: 20110219
  Serious: Yes (Other)
  Sender: FDA-Public Use
  Company Number: US-JNJFOC-20100701543

PATIENT
  Sex: Male
  Weight: 113.4 kg

DRUGS (1)
  1. LEVAQUIN [Suspect]
     Indication: SINUSITIS
     Route: 048

REACTIONS (4)
  - ARTHRALGIA [None]
  - OXYGEN SATURATION DECREASED [None]
  - PSORIASIS [None]
  - RASH [None]
